FAERS Safety Report 9865459 (Version 1)
Quarter: 2014Q1

REPORT INFORMATION
  Report Type: Spontaneous
  Country: US (occurrence: US)
  Receive Date: 20140203
  Receipt Date: 20140203
  Transmission Date: 20141002
  Serious: No
  Sender: FDA-Public Use
  Company Number: US-ALLERGAN-1303167US

PATIENT
  Age: 71 Year
  Sex: Female

DRUGS (4)
  1. RESTASIS [Suspect]
     Indication: DRY EYE
     Dosage: 2 GTT, BID
     Route: 047
     Dates: start: 20130106
  2. SYSTANE [Suspect]
     Indication: DRY EYE
     Route: 047
  3. REFRESH LIQUIGEL OPHTHALMIC [Suspect]
     Indication: DRY EYE
     Dosage: 2 GTT, QID
     Route: 047
     Dates: start: 20130203
  4. REFRESH LIQUIGEL OPHTHALMIC [Suspect]
     Dosage: 2 GTT, QID
     Route: 047
     Dates: start: 20130203

REACTIONS (4)
  - Lid margin discharge [Not Recovered/Not Resolved]
  - Vision blurred [Recovered/Resolved]
  - Eye pruritus [Not Recovered/Not Resolved]
  - Drug ineffective [Unknown]
